FAERS Safety Report 10110038 (Version 2)
Quarter: 2014Q3

REPORT INFORMATION
  Report Type: Spontaneous
  Country: US (occurrence: None)
  Receive Date: 20140421
  Receipt Date: 20140722
  Transmission Date: 20150326
  Serious: No
  Sender: FDA-Public Use
  Company Number: AEGR000364

PATIENT
  Age: 63 Year
  Sex: Female

DRUGS (5)
  1. LIVALO (PITAVASTATIN CALCIUM) [Concomitant]
  2. ASPIRIN. [Concomitant]
     Active Substance: ASPIRIN
  3. DICLOFENAC [Concomitant]
     Active Substance: DICLOFENAC
  4. CYCLOBENZAPRINE (CYCLOBENZAPRINE HYDROCHLORIDE) [Concomitant]
  5. JUXTAPID [Suspect]
     Active Substance: LOMITAPIDE MESYLATE
     Indication: TYPE IIA HYPERLIPIDAEMIA
     Route: 048
     Dates: start: 201306, end: 201403

REACTIONS (4)
  - Off label use [None]
  - Abdominal discomfort [None]
  - Product used for unknown indication [None]
  - Gastroenteritis [None]

NARRATIVE: CASE EVENT DATE: 201306
